FAERS Safety Report 9731288 (Version 2)
Quarter: 2014Q2

REPORT INFORMATION
  Report Type: Spontaneous
  Country: US (occurrence: US)
  Receive Date: 20131203
  Receipt Date: 20140603
  Transmission Date: 20141212
  Serious: Yes (Hospitalization)
  Sender: FDA-Public Use
  Company Number: US-BAYER-2013-146626

PATIENT
  Age: 23 Year
  Sex: Female
  Weight: 65.76 kg

DRUGS (1)
  1. MIRENA [Suspect]
     Indication: CONTRACEPTION
     Dosage: 20 MCG/24HR, CONT
     Route: 015
     Dates: start: 20100401, end: 20111219

REACTIONS (10)
  - Embedded device [None]
  - Device defective [None]
  - Medical device discomfort [None]
  - Procedural pain [None]
  - Scar [None]
  - Injury [None]
  - Pain [None]
  - Emotional distress [None]
  - Device issue [None]
  - Off label use [None]
